FAERS Safety Report 5162839-7 (Version None)
Quarter: 2006Q4

REPORT INFORMATION
  Report Type: 
  Country: None (occurrence: None)
  Receive Date: 20061201
  Receipt Date: 20010301
  Transmission Date: 20070319
  Serious: Yes (Hospitalization)
  Sender: FDA-Public Use
  Company Number: FR-GLAXOSMITHKLINE-B0100609A

PATIENT
  Age: 3 Day
  Sex: Male
  Weight: 3 kg

DRUGS (10)
  1. EPIVIR [Suspect]
     Indication: ANTIVIRAL PROPHYLAXIS
     Route: 048
  2. ZIDOVUDINE [Suspect]
     Indication: ANTIVIRAL PROPHYLAXIS
     Route: 042
     Dates: start: 19990713, end: 19990713
  3. LAMIVUDINE [Suspect]
     Indication: HIV INFECTION
  4. INDINIVIR SULFATE [Suspect]
     Indication: HIV INFECTION
  5. ZERIT [Suspect]
     Indication: ANTIVIRAL PROPHYLAXIS
     Route: 048
  6. STAVUDINE [Suspect]
     Indication: HIV INFECTION
  7. VITAMINS [Concomitant]
  8. IRON [Concomitant]
  9. SPASFON [Concomitant]
  10. MAGNE B6 [Concomitant]

REACTIONS (8)
  - ALANINE AMINOTRANSFERASE INCREASED [None]
  - ASPARTATE AMINOTRANSFERASE INCREASED [None]
  - BLOOD LACTIC ACID INCREASED [None]
  - DRUG EXPOSURE DURING PREGNANCY [None]
  - HYPERTRIGLYCERIDAEMIA [None]
  - NEONATAL DISORDER [None]
  - NEUTROPENIA [None]
  - PLATELET COUNT INCREASED [None]
